FAERS Safety Report 6443496-6 (Version None)
Quarter: 2009Q4

REPORT INFORMATION
  Report Type: 
  Country: None (occurrence: None)
  Receive Date: 20091117
  Receipt Date: 20091112
  Transmission Date: 20100525
  Serious: Yes (Hospitalization)
  Sender: FDA-Public Use
  Company Number: US-GENENTECH-286659

PATIENT
  Sex: Female
  Weight: 77.5 kg

DRUGS (1)
  1. RITUXIMAB [Suspect]
     Indication: RHEUMATOID ARTHRITIS
     Dosage: 500 MG, DAYS 1+15
     Route: 042
     Dates: start: 20090409

REACTIONS (1)
  - GASTRITIS HAEMORRHAGIC [None]
